FAERS Safety Report 23181401 (Version 1)
Quarter: 2023Q4

REPORT INFORMATION
  Report Type: Spontaneous
  Country: US (occurrence: None)
  Receive Date: 20231113
  Receipt Date: 20231113
  Transmission Date: 20240109
  Serious: Yes (Hospitalization)
  Sender: FDA-Public Use
  Company Number: None

PATIENT
  Age: 17 Year
  Sex: Male
  Weight: 39 kg

DRUGS (1)
  1. DUPIXENT [Suspect]
     Active Substance: DUPILUMAB
     Indication: Eosinophilic oesophagitis
     Dosage: OTHER FREQUENCY : EVERY 7 DAYS;?
     Route: 058
     Dates: start: 20230501

REACTIONS (1)
  - Cellulitis [None]

NARRATIVE: CASE EVENT DATE: 20231010
